FAERS Safety Report 8550070-4 (Version None)
Quarter: 2012Q3

REPORT INFORMATION
  Report Type: 
  Country: None (occurrence: None)
  Receive Date: 20120730
  Receipt Date: 20120725
  Transmission Date: 20120928
  Serious: Yes (Life-Threatening)
  Sender: FDA-Public Use
  Company Number: US-UCBSA-009978

PATIENT
  Age: 25 Year
  Sex: Male
  Weight: 65 kg

DRUGS (5)
  1. CIMZIA [Suspect]
     Indication: CROHN'S DISEASE
     Route: 058
     Dates: start: 20100407, end: 20100407
  2. ENTOCORT EC [Concomitant]
     Indication: CROHN'S DISEASE
     Route: 048
     Dates: start: 20090504
  3. XIFAXAN [Concomitant]
     Indication: CROHN'S DISEASE
     Route: 048
     Dates: start: 20081016
  4. LOMOTIL [Concomitant]
     Indication: DIARRHOEA
     Route: 048
     Dates: start: 20080101
  5. PREDNISONE [Concomitant]
     Indication: CROHN'S DISEASE
     Route: 048
     Dates: start: 20090504

REACTIONS (1)
  - ANAPHYLACTIC REACTION [None]
